FAERS Safety Report 24350822 (Version 1)
Quarter: 2024Q3

REPORT INFORMATION
  Report Type: Spontaneous
  Country: PT (occurrence: PT)
  Receive Date: 20240923
  Receipt Date: 20240923
  Transmission Date: 20241017
  Serious: No
  Sender: ROCHE
  Company Number: None

PATIENT
  Age: 53 Year
  Sex: Female
  Weight: 90.0 kg

DRUGS (6)
  1. TRASTUZUMAB [Suspect]
     Active Substance: TRASTUZUMAB
     Indication: Breast cancer
     Dosage: 720MG (SINGLE ADMINISTRATION - LOADING DOSE)
     Route: 065
     Dates: start: 20240301
  2. PERTUZUMAB [Concomitant]
     Active Substance: PERTUZUMAB
  3. FAMOTIDINE [Concomitant]
     Active Substance: FAMOTIDINE
  4. METHYLPREDNISOLONE [Concomitant]
     Active Substance: METHYLPREDNISOLONE
  5. ACECLOFENAC [Concomitant]
     Active Substance: ACECLOFENAC
  6. FUROSEMIDE [Concomitant]
     Active Substance: FUROSEMIDE

REACTIONS (3)
  - Chills [Recovered/Resolved]
  - Back pain [Recovered/Resolved]
  - Tremor [Recovered/Resolved]

NARRATIVE: CASE EVENT DATE: 20240301
